FAERS Safety Report 4268588-1 (Version None)
Quarter: 2004Q1

REPORT INFORMATION
  Report Type: 
  Country: None (occurrence: None)
  Receive Date: 20040112
  Receipt Date: 20031027
  Transmission Date: 20041129
  Serious: Yes (Other)
  Sender: FDA-Public Use
  Company Number: US-GLAXOSMITHKLINE-A0431972A

PATIENT
  Age: 70 Year
  Sex: Female
  Weight: 63.6 kg

DRUGS (5)
  1. WELLBUTRIN [Suspect]
     Indication: ILL-DEFINED DISORDER
     Dosage: 150MG TWICE PER DAY
     Route: 048
  2. SYNTHROID [Concomitant]
  3. THIAZIDE [Concomitant]
  4. FOSAMAX [Concomitant]
  5. VASOTEC [Concomitant]

REACTIONS (3)
  - ALOPECIA [None]
  - ARTHRITIS [None]
  - PSORIASIS [None]
